FAERS Safety Report 5975852-4 (Version None)
Quarter: 2008Q4

REPORT INFORMATION
  Report Type: 
  Country: None (occurrence: None)
  Receive Date: 20081202
  Receipt Date: 20081126
  Transmission Date: 20090506
  Serious: Yes (Other)
  Sender: FDA-Public Use
  Company Number: A0758340A

PATIENT
  Age: 53 Year
  Sex: Female

DRUGS (3)
  1. ADVAIR HFA [Suspect]
     Indication: ASTHMA
     Dosage: 1PUFF TWICE PER DAY
     Route: 055
  2. SYNTHROID [Concomitant]
  3. VIVELLE-DOT [Concomitant]

REACTIONS (4)
  - ASTHMA [None]
  - CONTUSION [None]
  - DRUG INEFFECTIVE [None]
  - SKIN ATROPHY [None]
